FAERS Safety Report 6661320-3 (Version None)
Quarter: 2010Q1

REPORT INFORMATION
  Report Type: 
  Country: None (occurrence: None)
  Receive Date: 20100331
  Receipt Date: 20100319
  Transmission Date: 20100710
  Serious: Yes (Other)
  Sender: FDA-Public Use
  Company Number: PHHY2010CA07947

PATIENT
  Age: 59 Year
  Sex: Male

DRUGS (2)
  1. LAMISIL [Suspect]
     Dosage: UNK
     Route: 048
  2. ROBAXACET [Concomitant]
     Dosage: UNK

REACTIONS (6)
  - ABDOMINAL DISCOMFORT [None]
  - MUSCLE TWITCHING [None]
  - PHOTOPHOBIA [None]
  - PHOTOPSIA [None]
  - RETINAL HAEMORRHAGE [None]
  - VISION BLURRED [None]
